FAERS Safety Report 4444952-2 (Version None)
Quarter: 2004Q3

REPORT INFORMATION
  Report Type: 
  Country: None (occurrence: None)
  Receive Date: 20040907
  Receipt Date: 20040826
  Transmission Date: 20050211
  Serious: Yes (Life-Threatening, Hospitalization)
  Sender: FDA-Public Use
  Company Number: 2004060856

PATIENT
  Age: 36 Year
  Sex: Female
  Weight: 52 kg

DRUGS (4)
  1. VIRACEPT [Suspect]
     Indication: HIV TEST POSITIVE
     Dates: end: 20040219
  2. ZIDOVU DINE W/LAMIVUDINE (LAMIVUDINE, ZIDOVUDINE) [Suspect]
     Indication: HIV TEST POSITIVE
     Dosage: (2 IN 1 D), ORAL
     Route: 048
  3. FERROUS SULFATE TAB [Concomitant]
  4. FOLIC ACID [Concomitant]

REACTIONS (12)
  - ABDOMINAL PAIN UPPER [None]
  - ALBUMINURIA [None]
  - BLOOD CREATININE ABNORMAL [None]
  - BLOOD URIC ACID INCREASED [None]
  - CAESAREAN SECTION [None]
  - DRUG EXPOSURE DURING PREGNANCY [None]
  - ERYSIPELAS [None]
  - PLACENTAL DISORDER [None]
  - PLACENTAL INSUFFICIENCY [None]
  - PLATELET COUNT DECREASED [None]
  - PRE-ECLAMPSIA [None]
  - ULTRASOUND ANTENATAL SCREEN ABNORMAL [None]
